FAERS Safety Report 6816935-6 (Version None)
Quarter: 2010Q3

REPORT INFORMATION
  Report Type: 
  Country: None (occurrence: None)
  Receive Date: 20100706
  Receipt Date: 20100629
  Transmission Date: 20110219
  Serious: Yes (Hospitalization, Other)
  Sender: FDA-Public Use
  Company Number: FR-BRISTOL-MYERS SQUIBB COMPANY-15173974

PATIENT
  Age: 61 Year
  Sex: Female

DRUGS (12)
  1. COAPROVEL TABS [Suspect]
     Route: 048
  2. GLUCOPHAGE [Suspect]
     Dosage: GLUCOPHAGE 1000
  3. ALDACTONE [Suspect]
     Dosage: TABLET
  4. HYPERIUM [Suspect]
     Dosage: TAB
  5. KERLONE [Suspect]
     Dosage: TAB
  6. PRAZOSIN HCL [Suspect]
     Dosage: 2X2 TABLETS/D
  7. PIRETANIDE [Suspect]
  8. DIAMICRON [Concomitant]
     Indication: DIABETES MELLITUS
     Dosage: 30 LP
  9. VASTEN [Concomitant]
  10. CRESTOR [Concomitant]
  11. ZYLORIC [Concomitant]
  12. LAMALINE [Concomitant]

REACTIONS (7)
  - DIARRHOEA [None]
  - HYPERKALAEMIA [None]
  - LACTIC ACIDOSIS [None]
  - MEDICATION ERROR [None]
  - RENAL FAILURE ACUTE [None]
  - URINARY TRACT INFECTION [None]
  - VOMITING [None]
